FAERS Safety Report 7896395-7 (Version None)
Quarter: 2011Q4

REPORT INFORMATION
  Report Type: 
  Country: None (occurrence: None)
  Receive Date: 20111106
  Receipt Date: 20110908
  Transmission Date: 20120403
  Serious: No
  Sender: FDA-Public Use
  Company Number: US-AMGEN-USASP2011046166

PATIENT
  Age: 78 Year
  Sex: Female
  Weight: 68.934 kg

DRUGS (20)
  1. ENBREL [Suspect]
     Indication: PRODUCT USED FOR UNKNOWN INDICATION
     Dosage: 50 MG, QWK
  2. PROCHLORPERAZ [Concomitant]
     Dosage: 5 MG, UNK
  3. PREDNISONE [Concomitant]
     Dosage: 2 MG, UNK
  4. MULTIVITAMIN                       /00097801/ [Concomitant]
  5. NEURONTIN [Concomitant]
     Dosage: 600 MG, UNK
  6. IMITREX [Concomitant]
     Dosage: 25 MG, UNK
  7. FENTANYL [Concomitant]
  8. CALCIUM [Concomitant]
  9. PLAQUENIL [Concomitant]
     Dosage: 200 MG, UNK
  10. PROTONIX [Concomitant]
     Dosage: 40 MG, UNK
  11. BENTYL [Concomitant]
     Dosage: 20 MG, UNK
  12. XANAX [Concomitant]
     Dosage: 0.5 MG, UNK
  13. ESTRADIOL [Concomitant]
     Dosage: 0.1 MG, UNK
  14. VITAMIN B 12 LICHTENSTEIN [Concomitant]
     Dosage: 1000 MUG, UNK
  15. FISH OIL [Concomitant]
  16. ASPIRIN [Concomitant]
     Dosage: 81 MG, UNK
  17. VITAMIN D [Concomitant]
     Dosage: 1000 IU, UNK
  18. DEPAKOTE [Concomitant]
     Dosage: 125 MG, UNK
  19. VOLTAREN [Concomitant]
     Dosage: 50 MG, UNK
  20. VICODIN [Concomitant]

REACTIONS (4)
  - OEDEMA PERIPHERAL [None]
  - DIZZINESS [None]
  - NAUSEA [None]
  - APPLICATION SITE VESICLES [None]
